FAERS Safety Report 12199847 (Version 3)
Quarter: 2016Q3

REPORT INFORMATION
  Report Type: Spontaneous
  Country: NO (occurrence: NO)
  Receive Date: 20160322
  Receipt Date: 20160825
  Transmission Date: 20161109
  Serious: Yes (Other)
  Sender: FDA-Public Use
  Company Number: NO-AMGEN-NORSP2016033515

PATIENT
  Age: 69 Year
  Sex: Male

DRUGS (11)
  1. COLLARGENT ACETARSOL [Concomitant]
     Dosage: 2X/DAY
  2. ENBREL [Suspect]
     Active Substance: ETANERCEPT
     Indication: PRODUCT USED FOR UNKNOWN INDICATION
     Dosage: UNK
     Route: 065
  3. HUMIRA [Suspect]
     Active Substance: ADALIMUMAB
     Indication: ANKYLOSING SPONDYLITIS
     Dosage: 1 DF (40MG/0.8ML), 2X/WEEK
     Route: 058
     Dates: start: 2011, end: 2014
  4. HUMIRA [Suspect]
     Active Substance: ADALIMUMAB
     Dosage: UNK
     Route: 058
     Dates: end: 2015
  5. COLLAGEN [Concomitant]
     Active Substance: COLLAGEN
     Dosage: 2X/DAY
  6. LOSARTAN. [Concomitant]
     Active Substance: LOSARTAN
     Indication: BLOOD PRESSURE MEASUREMENT
     Dosage: UNK
  7. HUMIRA [Suspect]
     Active Substance: ADALIMUMAB
     Dosage: 1 DF (40MG/0.8ML), 2X/WEEK
     Route: 058
     Dates: start: 201601
  8. CORTISONE [Suspect]
     Active Substance: CORTISONE\HYDROCORTISONE
     Indication: PRODUCT USED FOR UNKNOWN INDICATION
     Dosage: UNK
     Route: 065
  9. METHOTREXATE SODIUM. [Suspect]
     Active Substance: METHOTREXATE SODIUM
     Indication: PRODUCT USED FOR UNKNOWN INDICATION
     Dosage: UNK
     Route: 065
  10. LEVAXIN [Concomitant]
     Active Substance: LEVOTHYROXINE SODIUM
     Indication: METABOLIC DISORDER
     Dosage: UNK
  11. CORTISONE [Suspect]
     Active Substance: CORTISONE\HYDROCORTISONE
     Dosage: UNK
     Route: 048

REACTIONS (9)
  - Drug ineffective [Unknown]
  - Flatulence [Unknown]
  - Drug resistance [Unknown]
  - White blood cell count decreased [Not Recovered/Not Resolved]
  - Swelling [Unknown]
  - Infection [Unknown]
  - Rheumatic disorder [Unknown]
  - Rash [Unknown]
  - Femoral neck fracture [Unknown]

NARRATIVE: CASE EVENT DATE: 2016
